FAERS Safety Report 9832208 (Version 3)
Quarter: 2014Q1

REPORT INFORMATION
  Report Type: Spontaneous
  Country: US (occurrence: US)
  Receive Date: 20140121
  Receipt Date: 20140207
  Transmission Date: 20141002
  Serious: Yes (Other)
  Sender: FDA-Public Use
  Company Number: US-PFIZER INC-2013242878

PATIENT
  Age: 56 Year
  Sex: Female
  Weight: 68.03 kg

DRUGS (3)
  1. CALAN [Suspect]
     Indication: MITRAL VALVE PROLAPSE
     Dosage: 40 MG, 1X/DAY
     Dates: start: 198311, end: 201312
  2. LYRICA [Concomitant]
     Dosage: UNK
  3. CELEBREX [Concomitant]
     Indication: ARTHRITIS
     Dosage: 200 MG, DAILY

REACTIONS (1)
  - Breast cancer female [Recovered/Resolved]
